FAERS Safety Report 11457757 (Version 1)
Quarter: 2015Q3

REPORT INFORMATION
  Report Type: Spontaneous
  Country: JP (occurrence: JP)
  Receive Date: 20150904
  Receipt Date: 20150904
  Transmission Date: 20151125
  Serious: Yes (Other)
  Sender: FDA-Public Use
  Company Number: JP-GLAXOSMITHKLINE-A201202789

PATIENT
  Age: 46 Year
  Sex: Male

DRUGS (5)
  1. SERETIDE [Suspect]
     Active Substance: FLUTICASONE FUROATE\SALMETEROL XINAFOATE
     Dosage: 250 ?G, BID
     Route: 055
     Dates: start: 20100825
  2. SPIRIVA [Concomitant]
     Active Substance: TIOTROPIUM BROMIDE MONOHYDRATE
     Route: 055
     Dates: start: 20100825, end: 20101215
  3. INFLUENZA HA VACCINE [Concomitant]
     Active Substance: INFLUENZA VIRUS VACCINE
     Route: 058
     Dates: start: 201011, end: 201011
  4. MEPTIN CLICKHALER [Concomitant]
     Route: 055
     Dates: start: 20100825, end: 20101215
  5. MUCOSOLVAN L [Concomitant]
     Active Substance: AMBROXOL HYDROCHLORIDE
     Route: 048
     Dates: start: 20100907, end: 20101215

REACTIONS (5)
  - Respiratory tract infection [Recovered/Resolved]
  - Cough [Unknown]
  - Sputum retention [Unknown]
  - Sputum retention [Unknown]
  - Asthma [Unknown]

NARRATIVE: CASE EVENT DATE: 20100917
